FAERS Safety Report 17988264 (Version 1)
Quarter: 2020Q3

REPORT INFORMATION
  Report Type: Spontaneous
  Country: CA (occurrence: CA)
  Receive Date: 20200707
  Receipt Date: 20200707
  Transmission Date: 20201103
  Serious: Yes (Death, Life-Threatening)
  Sender: FDA-Public Use
  Company Number: CA-ACCORD-188713

PATIENT
  Age: 57 Year
  Sex: Male

DRUGS (24)
  1. MINOCYCLINE [Suspect]
     Active Substance: MINOCYCLINE HYDROCHLORIDE
     Indication: PRODUCT USED FOR UNKNOWN INDICATION
     Route: 065
  2. AUROTHIOGLUCOSE [Suspect]
     Active Substance: AUROTHIOGLUCOSE
     Indication: RHEUMATOID ARTHRITIS
     Route: 065
  3. HUMIRA [Suspect]
     Active Substance: ADALIMUMAB
     Indication: RHEUMATOID ARTHRITIS
     Dosage: SUBCUTANEOUS SOLUTION
     Route: 058
  4. REMICADE [Suspect]
     Active Substance: INFLIXIMAB
     Indication: RHEUMATOID ARTHRITIS
     Route: 042
  5. LYRICA [Concomitant]
     Active Substance: PREGABALIN
     Route: 065
  6. OXYCODONE [Suspect]
     Active Substance: OXYCODONE
     Indication: PAIN
     Route: 065
  7. METHOTREXATE. [Suspect]
     Active Substance: METHOTREXATE
     Indication: RHEUMATOID ARTHRITIS
     Route: 065
  8. SODIUM AUROTHIOMALATE [Suspect]
     Active Substance: GOLD SODIUM THIOMALATE
     Indication: RHEUMATOID ARTHRITIS
     Route: 051
  9. REMICADE [Suspect]
     Active Substance: INFLIXIMAB
     Indication: RHEUMATOID ARTHRITIS
     Route: 065
  10. SULFASALAZINE. [Suspect]
     Active Substance: SULFASALAZINE
     Indication: RHEUMATOID ARTHRITIS
     Route: 065
  11. ARAVA [Suspect]
     Active Substance: LEFLUNOMIDE
     Indication: RHEUMATOID ARTHRITIS
     Route: 065
  12. ENBREL [Suspect]
     Active Substance: ETANERCEPT
     Indication: RHEUMATOID ARTHRITIS
     Route: 058
  13. METHOTREXATE. [Suspect]
     Active Substance: METHOTREXATE
     Indication: RHEUMATOID ARTHRITIS
     Route: 013
  14. CANNABIS SATIVA [Suspect]
     Active Substance: CANNABIS SATIVA FLOWERING TOP
     Indication: PAIN
     Route: 065
  15. XELJANZ [Suspect]
     Active Substance: TOFACITINIB CITRATE
     Indication: PRODUCT USED FOR UNKNOWN INDICATION
     Dosage: 1 EVERY 12 HOURS
     Route: 048
  16. ACTEMRA [Suspect]
     Active Substance: TOCILIZUMAB
     Indication: RHEUMATOID ARTHRITIS
     Route: 065
  17. HYDROXYCHLOROQUINE [Suspect]
     Active Substance: HYDROXYCHLOROQUINE
     Indication: RHEUMATOID ARTHRITIS
     Route: 048
  18. ILARIS [Suspect]
     Active Substance: CANAKINUMAB
     Indication: RHEUMATOID ARTHRITIS
     Dosage: SINGLE?USE VIAL
     Route: 058
  19. ORENCIA [Suspect]
     Active Substance: ABATACEPT
     Indication: RHEUMATOID ARTHRITIS
     Route: 042
  20. RITUXIMAB. [Suspect]
     Active Substance: RITUXIMAB
     Indication: RHEUMATOID ARTHRITIS
     Route: 042
  21. ENBREL [Suspect]
     Active Substance: ETANERCEPT
     Indication: RHEUMATOID ARTHRITIS
     Route: 065
  22. LEFLUNOMIDE. [Suspect]
     Active Substance: LEFLUNOMIDE
     Indication: RHEUMATOID ARTHRITIS
     Route: 048
  23. ANAKINRA [Suspect]
     Active Substance: ANAKINRA
     Indication: RHEUMATOID ARTHRITIS
     Route: 065
  24. HUMIRA [Suspect]
     Active Substance: ADALIMUMAB
     Indication: RHEUMATOID ARTHRITIS
     Route: 065

REACTIONS (30)
  - Joint arthroplasty [Recovered/Resolved]
  - Stent placement [Unknown]
  - Stomatitis [Recovered/Resolved]
  - Renal failure [Recovered/Resolved]
  - Arthropathy [Recovered/Resolved]
  - Intentional product use issue [Unknown]
  - Pain [Recovered/Resolved]
  - Pulmonary embolism [Recovered/Resolved]
  - Drug hypersensitivity [Unknown]
  - Photosensitivity reaction [Recovered/Resolved]
  - Pulmonary thrombosis [Recovered/Resolved]
  - Red blood cell sedimentation rate increased [Recovered/Resolved]
  - Thrombosis [Recovered/Resolved]
  - Urticaria [Recovered/Resolved]
  - C-reactive protein abnormal [Recovered/Resolved]
  - Contraindicated product administered [Unknown]
  - Drug ineffective [Unknown]
  - Herpes zoster [Recovered/Resolved]
  - Knee arthroplasty [Unknown]
  - Myocardial infarction [Recovered/Resolved]
  - Sepsis [Recovered/Resolved]
  - Apparent death [Fatal]
  - Drug intolerance [Unknown]
  - Feeling abnormal [Recovered/Resolved]
  - Haemoglobin decreased [Recovered/Resolved]
  - Terminal state [Recovered/Resolved]
  - Interstitial lung disease [Recovered/Resolved]
  - Joint swelling [Recovered/Resolved]
  - Deep vein thrombosis [Recovered/Resolved]
  - Diverticulitis [Recovered/Resolved]
